FAERS Safety Report 17818296 (Version 2)
Quarter: 2021Q1

REPORT INFORMATION
  Report Type: Spontaneous
  Country: US (occurrence: US)
  Receive Date: 20200522
  Receipt Date: 20210129
  Transmission Date: 20210419
  Serious: Yes (Death, Congenital Anomaly, Other)
  Sender: FDA-Public Use
  Company Number: US-NAPPMUNDI-USA-2020-0152852

PATIENT
  Age: 58 Year
  Sex: Female

DRUGS (4)
  1. OXYCODONE HYDROCHLORIDE (SIMILAR TO NDA 22?272) [Suspect]
     Active Substance: OXYCODONE HYDROCHLORIDE
     Indication: PAIN
     Dosage: UNK
     Route: 048
  2. HYDROCODONE BITARTRATE AND ACETAMINOPHEN [Suspect]
     Active Substance: ACETAMINOPHEN\HYDROCODONE BITARTRATE
     Indication: PRODUCT USED FOR UNKNOWN INDICATION
     Dosage: UNK
     Route: 048
  3. OXYCONTIN [Suspect]
     Active Substance: OXYCODONE HYDROCHLORIDE
     Indication: PRODUCT USED FOR UNKNOWN INDICATION
     Dosage: UNK
     Route: 048
  4. BUTRANS [Suspect]
     Active Substance: BUPRENORPHINE
     Indication: PRODUCT USED FOR UNKNOWN INDICATION
     Dosage: UNK
     Route: 048

REACTIONS (16)
  - Septic shock [Fatal]
  - Haemodialysis [Fatal]
  - Depression [Unknown]
  - Renal tubular necrosis [Fatal]
  - Cerebrovascular accident [Fatal]
  - Cerebral haemorrhage [Fatal]
  - Acute respiratory failure [Fatal]
  - Cardiac disorder [Unknown]
  - Drug tolerance [Unknown]
  - Congenital anomaly [Unknown]
  - Drug dependence [Unknown]
  - Heart disease congenital [Fatal]
  - Acute kidney injury [Fatal]
  - Encephalopathy [Fatal]
  - Pneumonia [Fatal]
  - Nephropathy [Fatal]

NARRATIVE: CASE EVENT DATE: 20140228
